FAERS Safety Report 5961939-9 (Version None)
Quarter: 2008Q4

REPORT INFORMATION
  Report Type: 
  Country: None (occurrence: None)
  Receive Date: 20081121
  Receipt Date: 20081113
  Transmission Date: 20090506
  Serious: Yes (Hospitalization, Other)
  Sender: FDA-Public Use
  Company Number: US-AMGEN-QUU315158

PATIENT
  Sex: Male

DRUGS (6)
  1. NEUPOGEN [Suspect]
     Indication: CHEMOTHERAPY
     Route: 058
     Dates: start: 20080827
  2. RITUXIMAB [Concomitant]
     Route: 065
     Dates: start: 20080826
  3. CYCLOPHOSPHAMIDE [Concomitant]
     Dates: start: 20080826
  4. DOXORUBICIN HYDROCHLORIDE [Concomitant]
     Dates: start: 20080826
  5. VINCRISTINE [Concomitant]
     Dates: start: 20080826
  6. PREDNISONE TAB [Concomitant]
     Dates: start: 20080826

REACTIONS (3)
  - FEBRILE NEUTROPENIA [None]
  - INCORRECT DOSE ADMINISTERED [None]
  - NEUTROPENIA [None]
